FAERS Safety Report 21669569 (Version 1)
Quarter: 2022Q4

REPORT INFORMATION
  Report Type: Report from Study
  Country: US (occurrence: US)
  Receive Date: 20221201
  Receipt Date: 20221201
  Transmission Date: 20230112
  Serious: No
  Sender: FDA-Public Use
  Company Number: US-ABBVIE-4168476

PATIENT
  Sex: Female

DRUGS (1)
  1. HUMIRA [Suspect]
     Active Substance: ADALIMUMAB
     Indication: Uveitis
     Route: 058
     Dates: start: 20220920

REACTIONS (5)
  - Sinusitis [Recovered/Resolved]
  - Muscle spasms [Unknown]
  - Abdominal distension [Unknown]
  - Nausea [Unknown]
  - Sinusitis [Unknown]

NARRATIVE: CASE EVENT DATE: 20220101
